FAERS Safety Report 4515852-4 (Version None)
Quarter: 2004Q4

REPORT INFORMATION
  Report Type: 
  Country: None (occurrence: None)
  Receive Date: 20041001
  Receipt Date: 20031024
  Transmission Date: 20050328
  Serious: Yes (Hospitalization)
  Sender: FDA-Public Use
  Company Number: TPA2003A01505

PATIENT
  Age: 50 Year
  Sex: Female
  Weight: 136.0791 kg

DRUGS (6)
  1. ACTOS [Suspect]
     Indication: DIABETES MELLITUS NON-INSULIN-DEPENDENT
     Dosage: 30 MG, 1 IN 1 D, PER ORAL
     Route: 048
     Dates: start: 19981024, end: 19990101
  2. SYNTHROID [Concomitant]
  3. METOPROLOL TARTRATE [Concomitant]
  4. GLUCOVANCE (GLIBOMET) [Concomitant]
  5. ENALAPRIL (ENALAPRIL) [Concomitant]
  6. CELEBREX [Concomitant]

REACTIONS (4)
  - FLUID OVERLOAD [None]
  - INSOMNIA [None]
  - NEOPLASM [None]
  - VAGINAL HAEMORRHAGE [None]
